FAERS Safety Report 7201604-3 (Version None)
Quarter: 2010Q4

REPORT INFORMATION
  Report Type: 
  Country: None (occurrence: None)
  Receive Date: 20101216
  Receipt Date: 20101201
  Transmission Date: 20110411
  Serious: Yes (Other)
  Sender: FDA-Public Use
  Company Number: 2010AP002573

PATIENT
  Sex: Male

DRUGS (4)
  1. PRAVASTATIN SODIUM [Suspect]
     Dosage: 40 MG, QD;
  2. TOLBUTAMIDE [Concomitant]
  3. METFORMIN [Concomitant]
  4. ACETLSALICYLIC ACID [Concomitant]

REACTIONS (2)
  - TENDON RUPTURE [None]
  - TENDONITIS [None]
